FAERS Safety Report 18472946 (Version 1)
Quarter: 2020Q4

REPORT INFORMATION
  Report Type: Spontaneous
  Country: DE (occurrence: DE)
  Receive Date: 20201106
  Receipt Date: 20201106
  Transmission Date: 20210114
  Serious: Yes (Other)
  Sender: FDA-Public Use
  Company Number: DE-BAYER-2020-233042

PATIENT
  Age: 64 Year

DRUGS (1)
  1. GADOVIST [Suspect]
     Active Substance: GADOBUTROL
     Indication: MAGNETIC RESONANCE IMAGING
     Dosage: LAST MRI FOUR YEARS AGO

REACTIONS (3)
  - Fibrosis [Not Recovered/Not Resolved]
  - Gadolinium deposition disease [Unknown]
  - Skin hypertrophy [Not Recovered/Not Resolved]
